FAERS Safety Report 20649132 (Version 1)
Quarter: 2022Q1

REPORT INFORMATION
  Report Type: Spontaneous
  Country: US (occurrence: None)
  Receive Date: 20220329
  Receipt Date: 20220329
  Transmission Date: 20220423
  Serious: Yes (Hospitalization)
  Sender: FDA-Public Use
  Company Number: None

PATIENT
  Age: 70 Year
  Sex: Male
  Weight: 106 kg

DRUGS (1)
  1. PEMBROLIZUMAB [Suspect]
     Active Substance: PEMBROLIZUMAB
     Dates: end: 20220304

REACTIONS (5)
  - Asthenia [None]
  - Fall [None]
  - Aphasia [None]
  - Hemiparesis [None]
  - Cerebrovascular accident [None]

NARRATIVE: CASE EVENT DATE: 20220316
